FAERS Safety Report 25678051 (Version 2)
Quarter: 2025Q4

REPORT INFORMATION
  Report Type: Spontaneous
  Country: EU (occurrence: EU)
  Receive Date: 20250813
  Receipt Date: 20251015
  Transmission Date: 20260118
  Serious: Yes (Life-Threatening)
  Sender: TEVA
  Company Number: None

PATIENT
  Age: 50 Year
  Sex: Female

DRUGS (2)
  1. TRAMADOL [Suspect]
     Active Substance: TRAMADOL
     Indication: Poisoning deliberate
     Dosage: TRAMADOL (HYDROCHLORIDE)
     Route: 048
     Dates: start: 20250721, end: 20250721
  2. VALPROATE SODIUM [Suspect]
     Active Substance: VALPROATE SODIUM
     Indication: Poisoning deliberate
     Dosage: PROLONGED-RELEASE FILM-COATED TABLET
     Route: 048
     Dates: start: 20250721, end: 20250721

REACTIONS (3)
  - Intentional overdose [Recovered/Resolved]
  - Pancreatitis acute [Recovered/Resolved]
  - Coma [Recovered/Resolved]

NARRATIVE: CASE EVENT DATE: 20250721
